FAERS Safety Report 7944046-5 (Version None)
Quarter: 2011Q4

REPORT INFORMATION
  Report Type: 
  Country: None (occurrence: None)
  Receive Date: 20111128
  Receipt Date: 20111115
  Transmission Date: 20120403
  Serious: Yes (Other)
  Sender: FDA-Public Use
  Company Number: CA-ASTRAZENECA-2011SE69063

PATIENT
  Age: 61 Year
  Sex: Female
  Weight: 74.4 kg

DRUGS (1)
  1. PULMICORT [Suspect]
     Route: 055

REACTIONS (6)
  - PNEUMONIA [None]
  - COUGH [None]
  - INCREASED UPPER AIRWAY SECRETION [None]
  - RASH [None]
  - DYSPNOEA [None]
  - DRUG HYPERSENSITIVITY [None]
